FAERS Safety Report 7017794-1 (Version None)
Quarter: 2010Q3

REPORT INFORMATION
  Report Type: 
  Country: None (occurrence: None)
  Receive Date: 20100927
  Receipt Date: 20100927
  Transmission Date: 20110219
  Serious: No
  Sender: FDA-Public Use
  Company Number: None

PATIENT
  Age: 55 Year
  Sex: Male
  Weight: 81.0578 kg

DRUGS (1)
  1. ALLEGRA-D 12 HOUR [Suspect]
     Dosage: ONE TABLET BID ORAL
     Route: 048
     Dates: start: 20100813, end: 20100908

REACTIONS (2)
  - DRUG INEFFECTIVE [None]
  - PRODUCT SUBSTITUTION ISSUE [None]
